FAERS Safety Report 8774322 (Version 1)
Quarter: 2012Q4

REPORT INFORMATION
  Report Type: 
  Country: JP (occurrence: JP)
  Receive Date: 20120907
  Receipt Date: 20120907
  Transmission Date: 20130627
  Serious: Yes (Other)
  Sender: FDA-Public Use
  Company Number: JP-PFIZER INC-2012158313

PATIENT
  Age: 59 Year
  Sex: Female

DRUGS (3)
  1. CELECOX [Suspect]
     Dosage: 200 mg, daily
     Route: 048
  2. BUFERIN [Concomitant]
     Dosage: 81 mg, UNK
     Dates: start: 20120501
  3. VOLTAREN [Concomitant]
     Dosage: UNK

REACTIONS (2)
  - Liver disorder [Unknown]
  - Jaundice [Unknown]
